FAERS Safety Report 8518974-6 (Version None)
Quarter: 2012Q3

REPORT INFORMATION
  Report Type: 
  Country: None (occurrence: None)
  Receive Date: 20120718
  Receipt Date: 20120713
  Transmission Date: 20120928
  Serious: Yes (Hospitalization)
  Sender: FDA-Public Use
  Company Number: GR-GLAXOSMITHKLINE-B0815435A

PATIENT
  Age: 82 Year
  Sex: Female

DRUGS (5)
  1. SINTROM [Concomitant]
  2. CALCIUM CARBONATE [Concomitant]
  3. RISPERDAL [Concomitant]
  4. PROPAFENONE HYDROCHLORIDE [Suspect]
     Indication: PRODUCT USED FOR UNKNOWN INDICATION
     Dosage: 75MG PER DAY
     Route: 048
  5. EXELON [Suspect]
     Indication: DEMENTIA ALZHEIMER'S TYPE
     Dosage: 6ML TWICE PER DAY
     Route: 048

REACTIONS (3)
  - VENTRICULAR TACHYCARDIA [None]
  - SYNCOPE [None]
  - SINUS TACHYCARDIA [None]
